FAERS Safety Report 18592182 (Version 2)
Quarter: 2020Q4

REPORT INFORMATION
  Report Type: Spontaneous
  Country: AT (occurrence: AT)
  Receive Date: 20201208
  Receipt Date: 20201230
  Transmission Date: 20210114
  Serious: Yes (Hospitalization, Other)
  Sender: FDA-Public Use
  Company Number: NVSC2020AT323936

PATIENT
  Age: 53 Year
  Sex: Female

DRUGS (2)
  1. REVOLADE [Suspect]
     Active Substance: ELTROMBOPAG
     Indication: IMMUNE THROMBOCYTOPENIA
     Dosage: 50 MG, QD
     Route: 065
     Dates: start: 20201120
  2. REVOLADE [Suspect]
     Active Substance: ELTROMBOPAG
     Dosage: 75 MG, QD
     Route: 065

REACTIONS (4)
  - Coronavirus infection [Recovered/Resolved]
  - Leukopenia [Unknown]
  - Thrombocytopenia [Unknown]
  - Drug ineffective [Unknown]
